FAERS Safety Report 12520790 (Version 1)
Quarter: 2016Q3

REPORT INFORMATION
  Report Type: Spontaneous
  Country: US (occurrence: US)
  Receive Date: 20160701
  Receipt Date: 20160701
  Transmission Date: 20161109
  Serious: No
  Sender: FDA-Public Use
  Company Number: US-PFIZER INC-2016300314

PATIENT
  Sex: Male

DRUGS (2)
  1. LYRICA [Suspect]
     Active Substance: PREGABALIN
     Dosage: THREE CAPSULES
  2. LYRICA [Suspect]
     Active Substance: PREGABALIN
     Dosage: TWO CAPSULES

REACTIONS (1)
  - Somnolence [Unknown]
